FAERS Safety Report 6956584-2 (Version None)
Quarter: 2010Q3

REPORT INFORMATION
  Report Type: 
  Country: None (occurrence: None)
  Receive Date: 20100830
  Receipt Date: 20100827
  Transmission Date: 20110219
  Serious: No
  Sender: FDA-Public Use
  Company Number: US-ROXANE LABORATORIES, INC.-2010-RO-01152RO

PATIENT
  Sex: Female

DRUGS (4)
  1. CLOTRIMAZOLE [Suspect]
     Indication: CANDIDIASIS
     Dosage: 50 MG
     Route: 048
     Dates: start: 20100801, end: 20100826
  2. ACIDOPHILUS [Concomitant]
     Indication: PROPHYLAXIS
  3. FENTANYL CITRATE [Concomitant]
  4. METHADONE [Concomitant]
     Dosage: 20 MG

REACTIONS (1)
  - PRURITUS GENERALISED [None]
